FAERS Safety Report 22327300 (Version 1)
Quarter: 2023Q2

REPORT INFORMATION
  Report Type: Report from Study
  Country: CA (occurrence: CA)
  Receive Date: 20230516
  Receipt Date: 20230516
  Transmission Date: 20230721
  Serious: Yes (Hospitalization, Other)
  Sender: FDA-Public Use
  Company Number: CA-HLS-202301073

PATIENT
  Age: 59 Year
  Sex: Male

DRUGS (1)
  1. CLOZARIL [Suspect]
     Active Substance: CLOZAPINE
     Indication: Product used for unknown indication
     Route: 048
     Dates: start: 19980226

REACTIONS (3)
  - Neutrophil count increased [Unknown]
  - White blood cell count increased [Unknown]
  - Leukocytosis [Unknown]

NARRATIVE: CASE EVENT DATE: 20230509
